FAERS Safety Report 4648732-4 (Version None)
Quarter: 2005Q2

REPORT INFORMATION
  Report Type: 
  Country: None (occurrence: None)
  Receive Date: 20050429
  Receipt Date: 20050208
  Transmission Date: 20051028
  Serious: Yes (Other)
  Sender: FDA-Public Use
  Company Number: PHFR2005GB00838

PATIENT
  Age: 27 Year
  Sex: Female
  Weight: 80 kg

DRUGS (2)
  1. NEORAL [Suspect]
     Indication: PSORIASIS
     Dosage: 250MG/DAY
     Route: 048
  2. METHOTREXATE [Concomitant]
     Indication: PSORIASIS
     Route: 048
     Dates: end: 20050117

REACTIONS (2)
  - ABORTION SPONTANEOUS [None]
  - DRUG EXPOSURE DURING PREGNANCY [None]
